FAERS Safety Report 22198006 (Version 1)
Quarter: 2023Q2

REPORT INFORMATION
  Report Type: Other
  Country: DK (occurrence: DK)
  Receive Date: 20230411
  Receipt Date: 20230411
  Transmission Date: 20230722
  Serious: Yes (Hospitalization)
  Sender: FDA-Public Use
  Company Number: None

PATIENT
  Age: 36 Year
  Sex: Male
  Weight: 86 kg

DRUGS (5)
  1. VISIPAQUE [Suspect]
     Active Substance: IODIXANOL
     Indication: Scan with contrast
     Dosage: 70 ML, SINGLE
     Route: 042
     Dates: start: 20230202, end: 20230202
  2. VISIPAQUE [Suspect]
     Active Substance: IODIXANOL
     Indication: Product used for unknown indication
  3. ACETAMINOPHEN [Concomitant]
     Active Substance: ACETAMINOPHEN
     Indication: Pain
     Dates: start: 20220412
  4. LANSOPRAZOL MEDICAL VALLEY [Concomitant]
     Indication: Gastrooesophageal reflux disease
     Dates: start: 20200813
  5. GABAPENTIN [Concomitant]
     Active Substance: GABAPENTIN
     Indication: Neuralgia
     Dates: start: 20221116

REACTIONS (9)
  - Myalgia [Unknown]
  - Throat tightness [Unknown]
  - Feeling cold [Unknown]
  - Head discomfort [Unknown]
  - Swollen tongue [Recovering/Resolving]
  - Chest pain [Unknown]
  - Chills [Recovering/Resolving]
  - Erythema [Recovering/Resolving]
  - Pruritus [Recovering/Resolving]

NARRATIVE: CASE EVENT DATE: 20230202
